FAERS Safety Report 13085602 (Version 11)
Quarter: 2020Q3

REPORT INFORMATION
  Report Type: Spontaneous
  Country: US (occurrence: US)
  Receive Date: 20170104
  Receipt Date: 20200922
  Transmission Date: 20201102
  Serious: No
  Sender: FDA-Public Use
  Company Number: US-PFIZER INC-2017002250

PATIENT
  Age: 44 Year
  Sex: Female

DRUGS (4)
  1. LYRICA [Suspect]
     Active Substance: PREGABALIN
     Indication: SCOLIOSIS
     Dosage: 300 MG, 3X/DAY (ONE CAPSULE 3 TIMES A DAY)
     Route: 048
     Dates: start: 20190320
  2. LYRICA [Suspect]
     Active Substance: PREGABALIN
     Indication: BACK PAIN
     Dosage: 300 MG, 2X/DAY (TAKE 1 CAPSULE BY ORAL ROUTE 2 TIMES EVERY DAY)
     Route: 048
  3. LYRICA [Suspect]
     Active Substance: PREGABALIN
     Indication: FIBROMYALGIA
     Dosage: 10 MG, 2X/DAY
     Dates: start: 201606
  4. LYRICA [Suspect]
     Active Substance: PREGABALIN
     Indication: PAIN

REACTIONS (5)
  - Prescribed overdose [Unknown]
  - Exposure during pregnancy [Unknown]
  - Prescribed underdose [Unknown]
  - Movement disorder [Recovered/Resolved]
  - Loss of personal independence in daily activities [Recovered/Resolved]

NARRATIVE: CASE EVENT DATE: 201607
